FAERS Safety Report 6219801-2 (Version None)
Quarter: 2009Q2

REPORT INFORMATION
  Report Type: 
  Country: None (occurrence: None)
  Receive Date: 20090609
  Receipt Date: 20090603
  Transmission Date: 20091009
  Serious: Yes (Hospitalization)
  Sender: FDA-Public Use
  Company Number: AU-JNJFOC-20090601535

PATIENT
  Sex: Female
  Weight: 2.03 kg

DRUGS (6)
  1. TOPIRAMATE [Suspect]
     Indication: DRUG EXPOSURE DURING PREGNANCY
  2. ENDONE [Concomitant]
     Indication: DRUG EXPOSURE DURING PREGNANCY
     Route: 065
  3. LEVETIRACETAM [Concomitant]
     Indication: DRUG EXPOSURE DURING PREGNANCY
  4. FOLIC ACID [Concomitant]
     Indication: DRUG EXPOSURE DURING PREGNANCY
  5. ELEVIT [Concomitant]
     Indication: DRUG EXPOSURE DURING PREGNANCY
     Route: 064
  6. MORPHINE [Concomitant]
     Indication: DRUG EXPOSURE DURING PREGNANCY
     Route: 064

REACTIONS (1)
  - SMALL FOR DATES BABY [None]
